FAERS Safety Report 8113041-8 (Version None)
Quarter: 2012Q1

REPORT INFORMATION
  Report Type: 
  Country: None (occurrence: None)
  Receive Date: 20120131
  Receipt Date: 20120120
  Transmission Date: 20120608
  Serious: Yes (Hospitalization)
  Sender: FDA-Public Use
  Company Number: DSJ-2012-01178

PATIENT
  Age: 8 Decade
  Sex: Male

DRUGS (2)
  1. MEDICINE FOR PARKINSON'S DISEASE (ANTI-PARKINSON DRUGS) [Concomitant]
  2. BENICAR [Suspect]
     Indication: HYPERTENSION
     Dosage: 40 MG (40 MG, 1 IN 1 D), PER ORAL
     Route: 048
     Dates: start: 20110101, end: 20111201

REACTIONS (2)
  - HYPOTENSION [None]
  - MALAISE [None]
